FAERS Safety Report 4547951-5 (Version None)
Quarter: 2005Q1

REPORT INFORMATION
  Report Type: 
  Country: None (occurrence: None)
  Receive Date: 20050110
  Receipt Date: 20050104
  Transmission Date: 20050727
  Serious: Yes (Other)
  Sender: FDA-Public Use
  Company Number: US-JNJFOC-20050101015

PATIENT
  Age: 32 Year
  Sex: Female

DRUGS (7)
  1. DURAGESIC [Suspect]
     Route: 062
  2. PERCOCET [Concomitant]
  3. PERCOCET [Concomitant]
     Indication: THERAPEUTIC RESPONSE DECREASED
  4. FIORICET [Concomitant]
  5. FIORICET [Concomitant]
  6. FIORICET [Concomitant]
     Indication: HEADACHE
  7. ZOLOFT [Concomitant]
     Indication: DEPRESSION

REACTIONS (6)
  - DRUG ABUSER [None]
  - FALL [None]
  - HYPOAESTHESIA [None]
  - INTENTIONAL MISUSE [None]
  - MICTURITION DISORDER [None]
  - PARAESTHESIA [None]
